FAERS Safety Report 7948353-1 (Version None)
Quarter: 2011Q4

REPORT INFORMATION
  Report Type: 
  Country: None (occurrence: None)
  Receive Date: 20111123
  Receipt Date: 20111110
  Transmission Date: 20120403
  Serious: Yes (Hospitalization, Other)
  Sender: FDA-Public Use
  Company Number: 2009CZ0046

PATIENT
  Age: 19 Year
  Sex: Male

DRUGS (1)
  1. ORFADIN [Suspect]
     Indication: TYROSINAEMIA
     Dosage: 1,07 MG/KG (60 MG, 1 IN 1 D)
     Dates: start: 20020101

REACTIONS (6)
  - ALPHA 1 FOETOPROTEIN INCREASED [None]
  - HEPATIC NEOPLASM MALIGNANT [None]
  - AMINO ACID LEVEL INCREASED [None]
  - HEPATIC ADENOMA [None]
  - LIVER TRANSPLANT [None]
  - NEPHROPATHY [None]
